FAERS Safety Report 25851999 (Version 3)
Quarter: 2025Q4

REPORT INFORMATION
  Report Type: Report from Study
  Country: US (occurrence: US)
  Receive Date: 20250926
  Receipt Date: 20251224
  Transmission Date: 20260118
  Serious: Yes (Death, Life-Threatening, Hospitalization, Disabling)
  Sender: JOHNSON AND JOHNSON
  Company Number: US-JNJFOC-20250932637

PATIENT
  Sex: Male

DRUGS (1)
  1. CARVYKTI [Suspect]
     Active Substance: CILTACABTAGENE AUTOLEUCEL
     Indication: Product used for unknown indication
     Dates: start: 20240214, end: 20240214

REACTIONS (3)
  - Infection [Fatal]
  - Immune-mediated enterocolitis [Recovered/Resolved with Sequelae]
  - Intestinal perforation [Unknown]

NARRATIVE: CASE EVENT DATE: 20240605
